FAERS Safety Report 24222608 (Version 1)
Quarter: 2024Q3

REPORT INFORMATION
  Report Type: Spontaneous
  Country: US (occurrence: None)
  Receive Date: 20240816
  Receipt Date: 20240816
  Transmission Date: 20241017
  Serious: Yes (Hospitalization)
  Sender: Public
  Company Number: None

PATIENT
  Age: 61 Year
  Sex: Male

DRUGS (8)
  1. AMBRISENTAN [Suspect]
     Active Substance: AMBRISENTAN
     Indication: Pulmonary hypertension
     Dosage: 5MG QD ORAL
     Route: 048
     Dates: start: 20240718
  2. TADALAFIL [Concomitant]
  3. SPIRONOLACTONE [Concomitant]
     Active Substance: SPIRONOLACTONE
  4. LACTULOSE [Concomitant]
  5. FUROSEMIDE [Concomitant]
  6. SERTRALINE [Concomitant]
  7. HYDROXYZINE [Concomitant]
  8. FERROUS SULFATE [Concomitant]

REACTIONS (1)
  - Acute pulmonary oedema [None]

NARRATIVE: CASE EVENT DATE: 20240815
